FAERS Safety Report 10184276 (Version 1)
Quarter: 2014Q2

REPORT INFORMATION
  Report Type: Report from Study
  Country: US (occurrence: US)
  Receive Date: 20140520
  Receipt Date: 20140520
  Transmission Date: 20141212
  Serious: Yes (Hospitalization)
  Sender: FDA-Public Use
  Company Number: US-ONYX-2014-1043

PATIENT
  Age: 58 Year
  Sex: Female

DRUGS (17)
  1. CARFILZOMIB [Suspect]
     Indication: PLASMA CELL MYELOMA
     Route: 042
     Dates: start: 20140227, end: 20140425
  2. ARRY-520 [Concomitant]
     Indication: PLASMA CELL MYELOMA
     Dates: start: 20140227, end: 20140425
  3. DEXAMETHASONE [Concomitant]
     Dates: start: 20140227, end: 20140425
  4. MAGNESIUM OXIDE [Concomitant]
     Indication: PRODUCT USED FOR UNKNOWN INDICATION
     Route: 048
  5. NIFEDIPINE [Concomitant]
     Indication: PRODUCT USED FOR UNKNOWN INDICATION
     Route: 048
  6. POTASSIUM CHLORIDE [Concomitant]
     Indication: PRODUCT USED FOR UNKNOWN INDICATION
     Route: 048
  7. VALTREX [Concomitant]
     Indication: PRODUCT USED FOR UNKNOWN INDICATION
     Route: 048
  8. ALBUTEROL [Concomitant]
     Indication: DYSPNOEA
  9. XANAX [Concomitant]
     Indication: ANXIETY
     Route: 048
  10. OXYCODONE [Concomitant]
     Indication: PAIN
     Route: 048
  11. AMBIEN [Concomitant]
     Indication: INSOMNIA
     Route: 048
  12. ZOFRAN [Concomitant]
     Indication: NAUSEA
     Route: 048
  13. ZOFRAN [Concomitant]
     Indication: VOMITING
  14. PHENERGAN [Concomitant]
     Indication: NAUSEA
     Route: 048
  15. PHENERGAN [Concomitant]
     Indication: VOMITING
  16. UNSPECIFIED INGREDIENT [Concomitant]
     Indication: NAUSEA
     Route: 048
  17. UNSPECIFIED INGREDIENT [Concomitant]
     Indication: VOMITING

REACTIONS (3)
  - Dehydration [Recovered/Resolved]
  - Renal failure acute [Recovered/Resolved]
  - Nausea [Recovered/Resolved]
